FAERS Safety Report 9570023 (Version 1)
Quarter: 2013Q3

REPORT INFORMATION
  Report Type: Spontaneous
  Country: US (occurrence: US)
  Receive Date: 20130930
  Receipt Date: 20130930
  Transmission Date: 20140515
  Serious: No
  Sender: FDA-Public Use
  Company Number: US-AMGEN-USASP2013065442

PATIENT
  Age: 54 Year
  Sex: Female
  Weight: 62.59 kg

DRUGS (2)
  1. ENBREL [Suspect]
     Indication: PRODUCT USED FOR UNKNOWN INDICATION
     Dosage: 50 MG, ONCE A WEEK
     Route: 058
  2. METHOTREXATE [Concomitant]
     Dosage: 25 MG/ML, UNK

REACTIONS (3)
  - Injection site bruising [Unknown]
  - Sinusitis [Unknown]
  - Injection site urticaria [Unknown]
